FAERS Safety Report 12385067 (Version 1)
Quarter: 2016Q2

REPORT INFORMATION
  Report Type: Spontaneous
  Country: US (occurrence: None)
  Receive Date: 20160518
  Receipt Date: 20160518
  Transmission Date: 20160815
  Serious: No
  Sender: FDA-Public Use
  Company Number: None

PATIENT
  Age: 41 Year
  Sex: Female
  Weight: 61.3 kg

DRUGS (2)
  1. FENTANYL. [Suspect]
     Active Substance: FENTANYL
     Dosage: TUBING FOR PCA TUBING CONNECTER INTRAVENOUS
     Route: 042
     Dates: start: 20160511, end: 20160512
  2. PCA TUBING CONNECTER [Concomitant]

REACTIONS (4)
  - Middle insomnia [None]
  - Device leakage [None]
  - Agitation [None]
  - Device breakage [None]

NARRATIVE: CASE EVENT DATE: 20160512
